FAERS Safety Report 6398043-4 (Version None)
Quarter: 2009Q4

REPORT INFORMATION
  Report Type: 
  Country: None (occurrence: None)
  Receive Date: 20091013
  Receipt Date: 20091005
  Transmission Date: 20100525
  Serious: Yes (Death)
  Sender: FDA-Public Use
  Company Number: FR-ROCHE-660578

PATIENT
  Age: 3 Year
  Sex: Male
  Weight: 11 kg

DRUGS (4)
  1. DIAZEPAM [Suspect]
     Route: 065
  2. EPOETIN BETA [Suspect]
     Indication: CEREBRAL MALARIA
     Dosage: FORM INFUSION, DOSE: 1500 U/ KG DAILY
     Route: 042
  3. QUININE [Suspect]
     Indication: CEREBRAL MALARIA
     Dosage: DOSE: 20 MG SALT/ KG BW
     Route: 042
  4. PHENOBARBITAL [Suspect]
     Route: 065

REACTIONS (1)
  - DEATH [None]
